FAERS Safety Report 4552336-1 (Version None)
Quarter: 2005Q1

REPORT INFORMATION
  Report Type: 
  Country: None (occurrence: None)
  Receive Date: 20050114
  Receipt Date: 20040206
  Transmission Date: 20050727
  Serious: No
  Sender: FDA-Public Use
  Company Number: US-GLAXOSMITHKLINE-A0497104A

PATIENT
  Sex: Female

DRUGS (7)
  1. IMITREX [Suspect]
     Indication: MIGRAINE
     Dosage: 6MG PER DAY
     Route: 058
  2. ALLEGRA [Concomitant]
  3. NEXIUM [Concomitant]
  4. EVISTA [Concomitant]
  5. CHLORPROMAZINE [Concomitant]
  6. UNKNOWN MEDICATION [Concomitant]
  7. FLOVENT [Concomitant]

REACTIONS (4)
  - HEART RATE IRREGULAR [None]
  - HYPERTENSION [None]
  - NAUSEA [None]
  - TREMOR [None]
